FAERS Safety Report 5909447-5 (Version None)
Quarter: 2008Q4

REPORT INFORMATION
  Report Type: 
  Country: None (occurrence: None)
  Receive Date: 20081001
  Receipt Date: 20080922
  Transmission Date: 20090506
  Serious: Yes (Hospitalization)
  Sender: FDA-Public Use
  Company Number: GXKR2008KR09105

PATIENT
  Age: 42 Year
  Sex: Male

DRUGS (5)
  1. RIFAMPICIN [Suspect]
     Indication: PULMONARY TUBERCULOSIS
     Dosage: 600 MG/DAY
  2. CHLORPROMAZINE [Suspect]
     Indication: SCHIZOPHRENIA
     Dosage: 600 MG/DAY
  3. ISONIAZID [Concomitant]
  4. PYRAZINAMIDE [Concomitant]
  5. BENZATROPINE (BENZATROPINE) UNKNOWN [Concomitant]

REACTIONS (6)
  - BLOOD GLUCOSE INCREASED [None]
  - DRUG INTERACTION [None]
  - NEUROLEPTIC MALIGNANT SYNDROME [None]
  - SLEEP DISORDER [None]
  - SPEECH DISORDER [None]
  - VOMITING [None]
